FAERS Safety Report 18564650 (Version 1)
Quarter: 2020Q4

REPORT INFORMATION
  Report Type: Spontaneous
  Country: NL (occurrence: NL)
  Receive Date: 20201201
  Receipt Date: 20201201
  Transmission Date: 20210114
  Serious: Yes (Other)
  Sender: FDA-Public Use
  Company Number: NL-MYLANLABS-2020M1097172

PATIENT
  Sex: Female
  Weight: 75 kg

DRUGS (3)
  1. CITALOPRAM [Concomitant]
     Active Substance: CITALOPRAM HYDROBROMIDE
     Dosage: 10 MILLIGRAM, QD, CITALOPRAM 10 MG, 1 TABLET PER DAG
  2. PREDNISOLONE. [Suspect]
     Active Substance: PREDNISOLONE
     Indication: PNEUMONITIS
     Dosage: 30 MILLIGRAM, QD, 1 X DAAGS 1 TABLET
     Dates: start: 202009
  3. CICLESONIDE [Concomitant]
     Active Substance: CICLESONIDE
     Dosage: 160 MICROGRAM, Q6H, 160 MCG DOSIS, 4 DOSIS PER DAG

REACTIONS (1)
  - Hyperthyroidism [Recovered/Resolved]
